FAERS Safety Report 11190146 (Version 1)
Quarter: 2015Q2

REPORT INFORMATION
  Report Type: Spontaneous
  Country: None (occurrence: None)
  Receive Date: 20150612
  Receipt Date: 20150612
  Transmission Date: 20150821
  Serious: No
  Sender: FDA-Public Use
  Company Number: None

PATIENT
  Age: 22 Year
  Sex: Female
  Weight: 3.4 kg

DRUGS (1)
  1. NEXPLANON [Suspect]
     Active Substance: ETONOGESTREL
     Dates: start: 20130115, end: 20150610

REACTIONS (5)
  - Dizziness [None]
  - Headache [None]
  - Menorrhagia [None]
  - Withdrawal syndrome [None]
  - Nausea [None]

NARRATIVE: CASE EVENT DATE: 20150611
